FAERS Safety Report 9164506 (Version 1)
Quarter: 2013Q1

REPORT INFORMATION
  Report Type: Spontaneous
  Country: IT (occurrence: None)
  Receive Date: 20130226
  Receipt Date: 20130226
  Transmission Date: 20140127
  Serious: Yes (Life-Threatening)
  Sender: FDA-Public Use
  Company Number: 1611010

PATIENT
  Age: 68 Year
  Sex: Female
  Weight: 61 kg

DRUGS (2)
  1. PACLITAXEL [Suspect]
     Dosage: 280 MG MILLIGRAM(S) (CYCLICAL) INTRAVENOUS (NOT OTHERWISE SPECIFIED)
     Route: 042
     Dates: start: 20130125, end: 20130215
  2. CARBOPLATIN [Concomitant]
     Indication: OVARIAN CANCER

REACTIONS (4)
  - Feeling hot [None]
  - Chest discomfort [None]
  - Erythema [None]
  - Back pain [None]
